FAERS Safety Report 9026951 (Version 1)
Quarter: 2013Q1

REPORT INFORMATION
  Report Type: Spontaneous
  Country: US (occurrence: US)
  Receive Date: 20130123
  Receipt Date: 20130123
  Transmission Date: 20140127
  Serious: Yes (Other)
  Sender: FDA-Public Use
  Company Number: US-PFIZER INC-2013024535

PATIENT
  Sex: Male

DRUGS (1)
  1. LYRICA [Suspect]
     Dosage: 75 MG, 2X/DAY
     Dates: start: 201212, end: 20130119

REACTIONS (4)
  - Hallucination [Unknown]
  - Agitation [Unknown]
  - Abnormal sleep-related event [Unknown]
  - Fall [Unknown]
